FAERS Safety Report 4469481-1 (Version None)
Quarter: 2004Q4

REPORT INFORMATION
  Report Type: 
  Country: None (occurrence: None)
  Receive Date: 20041008
  Receipt Date: 20040930
  Transmission Date: 20050328
  Serious: Yes (Other)
  Sender: FDA-Public Use
  Company Number: US-JNJFOC-20031200253

PATIENT
  Sex: Female

DRUGS (28)
  1. RISPERDAL [Suspect]
     Indication: SCHIZOPHRENIA
     Route: 049
  2. RISPERDAL CONSTA [Suspect]
  3. CALCIUM D [Concomitant]
  4. CALCIUM D [Concomitant]
  5. CALCIUM D [Concomitant]
  6. KEPPRA [Concomitant]
  7. ZONEGRAN [Concomitant]
  8. SYNTHROID [Concomitant]
  9. ALLEGRA [Concomitant]
  10. PROTONIX [Concomitant]
  11. ATIVAN [Concomitant]
  12. ADVAIR DISKUS 100/50 [Concomitant]
  13. ADVAIR DISKUS 100/50 [Concomitant]
  14. KETOCONAZOLE [Concomitant]
  15. DESONIDE [Concomitant]
  16. CLOBETASOL [Concomitant]
  17. FELBAMATE [Concomitant]
  18. TRILEPTAL [Concomitant]
  19. VITAMIN E [Concomitant]
  20. MULTI-VITAMIN [Concomitant]
  21. MULTI-VITAMIN [Concomitant]
  22. MULTI-VITAMIN [Concomitant]
  23. MULTI-VITAMIN [Concomitant]
  24. MULTI-VITAMIN [Concomitant]
  25. MULTI-VITAMIN [Concomitant]
  26. MULTI-VITAMIN [Concomitant]
  27. MULTI-VITAMIN [Concomitant]
  28. CLARITIN [Concomitant]

REACTIONS (18)
  - ABDOMINAL DISTENSION [None]
  - ASTHMA [None]
  - CHEST PAIN [None]
  - CONDITION AGGRAVATED [None]
  - CUSHINGOID [None]
  - DEPRESSION [None]
  - FALL [None]
  - GASTROOESOPHAGEAL REFLUX DISEASE [None]
  - HEAD INJURY [None]
  - INSOMNIA [None]
  - JOINT SWELLING [None]
  - LOSS OF CONSCIOUSNESS [None]
  - MYALGIA [None]
  - OEDEMA PERIPHERAL [None]
  - RESTLESSNESS [None]
  - STATUS EPILEPTICUS [None]
  - SYNCOPE [None]
  - WEIGHT INCREASED [None]
